FAERS Safety Report 5100082-8 (Version None)
Quarter: 2006Q3

REPORT INFORMATION
  Report Type: 
  Country: None (occurrence: None)
  Receive Date: 20060731
  Receipt Date: 20060530
  Transmission Date: 20061208
  Serious: No
  Sender: FDA-Public Use
  Company Number: 2006PV014696

PATIENT
  Age: 77 Year
  Sex: Female

DRUGS (5)
  1. BYETTA [Suspect]
     Dosage: SEE IMAGE
     Route: 058
     Dates: start: 20051001, end: 20051201
  2. BYETTA [Suspect]
     Dosage: SEE IMAGE
     Route: 058
     Dates: start: 20051101, end: 20051201
  3. BYETTA [Suspect]
     Dosage: SEE IMAGE
     Route: 058
     Dates: start: 20051201, end: 20060501
  4. BYETTA [Suspect]
     Dosage: SEE IMAGE
     Route: 058
     Dates: start: 20060501
  5. BYETTA [Suspect]
     Dosage: SEE IMAGE
     Route: 058
     Dates: start: 20060501

REACTIONS (7)
  - AGEUSIA [None]
  - BALANCE DISORDER [None]
  - CONDITION AGGRAVATED [None]
  - DIZZINESS [None]
  - GASTROOESOPHAGEAL REFLUX DISEASE [None]
  - VOMITING [None]
  - WEIGHT DECREASED [None]
